FAERS Safety Report 6012408-1 (Version None)
Quarter: 2008Q4

REPORT INFORMATION
  Report Type: 
  Country: None (occurrence: None)
  Receive Date: 20081218
  Receipt Date: 20081013
  Transmission Date: 20090506
  Serious: No
  Sender: FDA-Public Use
  Company Number: US-ASTRAZENECA-2008UW22543

PATIENT
  Age: 63 Year
  Sex: Female

DRUGS (9)
  1. SYMBICORT [Suspect]
     Dosage: 160/4.5 MCG BID
     Route: 055
     Dates: start: 20080515, end: 20080630
  2. SYMBICORT [Suspect]
     Dosage: 160/4.5 MCG BID
     Route: 055
     Dates: start: 20080710, end: 20080811
  3. SPIRIVA [Concomitant]
  4. NEXIUM [Concomitant]
     Route: 048
  5. COZAAR [Concomitant]
  6. MUCINEX [Concomitant]
  7. SINGULAIR [Concomitant]
  8. CLARITIN [Concomitant]
  9. XOPENEX [Concomitant]
     Dosage: NEBULIZER

REACTIONS (1)
  - CANDIDIASIS [None]
